FAERS Safety Report 5907796-8 (Version None)
Quarter: 2008Q3

REPORT INFORMATION
  Report Type: 
  Country: None (occurrence: None)
  Receive Date: 20080929
  Receipt Date: 20080917
  Transmission Date: 20090109
  Serious: Yes (Congenital Anomaly)
  Sender: FDA-Public Use
  Company Number: WAES 0809USA03280

PATIENT
  Sex: Female

DRUGS (10)
  1. ALDOMET [Suspect]
     Indication: HYPERTENSION
     Dosage: PO
     Route: 048
  2. VERAPAMIL [Suspect]
  3. ASPIRIN [Concomitant]
  4. ATENOLOL [Concomitant]
  5. AZATHIOPRINE [Concomitant]
  6. DARBEPOETIN ALFA [Concomitant]
  7. DIAZEPAM [Concomitant]
  8. FUROSEMIDE [Concomitant]
  9. METOPROLOL TARTRATE [Concomitant]
  10. TACROLIMUS [Concomitant]

REACTIONS (8)
  - ATRIAL SEPTAL DEFECT [None]
  - CONGENITAL ANOMALY [None]
  - CONGENITAL TRICUSPID VALVE INCOMPETENCE [None]
  - MATERNAL DRUGS AFFECTING FOETUS [None]
  - NEONATAL ANURIA [None]
  - PATENT DUCTUS ARTERIOSUS [None]
  - PERSISTENT FOETAL CIRCULATION [None]
  - PREMATURE BABY [None]
